FAERS Safety Report 15709127 (Version 3)
Quarter: 2019Q1

REPORT INFORMATION
  Report Type: Spontaneous
  Country: US (occurrence: US)
  Receive Date: 20181211
  Receipt Date: 20190315
  Transmission Date: 20190417
  Serious: Yes (Other)
  Sender: FDA-Public Use
  Company Number: US-PFIZER INC-2018506840

PATIENT
  Age: 65 Year
  Sex: Female
  Weight: 62.59 kg

DRUGS (1)
  1. IBRANCE [Suspect]
     Active Substance: PALBOCICLIB
     Indication: BREAST CANCER METASTATIC
     Dosage: 125 MG, CYCLIC [D 1-21Q 28 DAYS]
     Route: 048
     Dates: start: 20181023

REACTIONS (7)
  - Productive cough [Unknown]
  - Renal impairment [Unknown]
  - Nasopharyngitis [Unknown]
  - Feeling hot [Unknown]
  - Ageusia [Unknown]
  - Decreased immune responsiveness [Unknown]
  - Dysgeusia [Unknown]

NARRATIVE: CASE EVENT DATE: 2018
